FAERS Safety Report 6509577-3 (Version None)
Quarter: 2009Q4

REPORT INFORMATION
  Report Type: 
  Country: None (occurrence: None)
  Receive Date: 20091222
  Receipt Date: 20091217
  Transmission Date: 20100525
  Serious: Yes (Death)
  Sender: FDA-Public Use
  Company Number: US-ROCHE-675460

PATIENT
  Sex: Female
  Weight: 55.8 kg

DRUGS (1)
  1. CAPECITABINE [Suspect]
     Indication: COLORECTAL CANCER
     Dosage: DOSE: 1500 MG IN MORNING, 1000 MG IN EVENING
     Route: 048
     Dates: start: 20090812, end: 20091217

REACTIONS (1)
  - DEATH [None]
